FAERS Safety Report 24079873 (Version 2)
Quarter: 2024Q3

REPORT INFORMATION
  Report Type: Spontaneous
  Country: US (occurrence: US)
  Receive Date: 20240711
  Receipt Date: 20240926
  Transmission Date: 20241017
  Serious: No
  Sender: PFIZER
  Company Number: US-PFIZER INC-PV202400074466

PATIENT
  Age: 54 Year
  Sex: Female

DRUGS (3)
  1. TUKYSA [Suspect]
     Active Substance: TUCATINIB
     Dosage: 2 TABLETS, 2X/DAY
  2. TUKYSA [Suspect]
     Active Substance: TUCATINIB
     Dosage: 1 TABLET, 1X/DAY
  3. TUKYSA [Suspect]
     Active Substance: TUCATINIB
     Dosage: 150 MG

REACTIONS (4)
  - Gastrointestinal disorder [Unknown]
  - Liver disorder [Unknown]
  - Malaise [Unknown]
  - Dyspnoea [Unknown]
